FAERS Safety Report 21032301 (Version 2)
Quarter: 2022Q3

REPORT INFORMATION
  Report Type: Spontaneous
  Country: US (occurrence: None)
  Receive Date: 20220701
  Receipt Date: 20220728
  Transmission Date: 20221027
  Serious: No
  Sender: FDA-Public Use
  Company Number: 2022A235551

PATIENT
  Age: 23611 Day
  Sex: Female

DRUGS (2)
  1. BUDESONIDE\FORMOTEROL [Suspect]
     Active Substance: BUDESONIDE\FORMOTEROL
     Indication: Asthma
     Dosage: 80/4.5 MCG, 2 PUFFS TWICE A DAY
     Route: 055
     Dates: start: 2019
  2. BUDESONIDE\FORMOTEROL [Suspect]
     Active Substance: BUDESONIDE\FORMOTEROL
     Indication: Dyspnoea
     Dosage: 80/4.5 MCG, 2 PUFFS TWICE A DAY
     Route: 055
     Dates: start: 2019

REACTIONS (2)
  - Dyspnoea [Unknown]
  - Device delivery system issue [Unknown]

NARRATIVE: CASE EVENT DATE: 20220622
